FAERS Safety Report 23365975 (Version 1)
Quarter: 2024Q1

REPORT INFORMATION
  Report Type: Spontaneous
  Country: CN (occurrence: None)
  Receive Date: 20240104
  Receipt Date: 20240104
  Transmission Date: 20240410
  Serious: Yes (Hospitalization)
  Sender: FDA-Public Use
  Company Number: CN-ROCHE-3482996

PATIENT
  Age: 40 Year
  Sex: Male
  Weight: 62.3 kg

DRUGS (5)
  1. OXALIPLATIN [Suspect]
     Active Substance: OXALIPLATIN
     Indication: Metastases to lung
     Route: 041
     Dates: start: 20231201
  2. FLUOROURACIL [Suspect]
     Active Substance: FLUOROURACIL
     Indication: Metastases to lung
     Route: 065
     Dates: start: 20231201
  3. LEUCOVORIN CALCIUM [Suspect]
     Active Substance: LEUCOVORIN CALCIUM
     Indication: Metastases to lung
     Route: 041
     Dates: start: 20231201
  4. IRINOTECAN HYDROCHLORIDE [Suspect]
     Active Substance: IRINOTECAN HYDROCHLORIDE
     Indication: Metastases to lung
     Route: 041
     Dates: start: 20231201
  5. AVASTIN [Suspect]
     Active Substance: BEVACIZUMAB
     Indication: Metastases to lung
     Route: 041
     Dates: start: 20231201

REACTIONS (2)
  - Granulocyte count decreased [Recovering/Resolving]
  - White blood cell count decreased [Recovering/Resolving]

NARRATIVE: CASE EVENT DATE: 20231220
